FAERS Safety Report 24663810 (Version 1)
Quarter: 2024Q4

REPORT INFORMATION
  Report Type: Spontaneous
  Country: US (occurrence: US)
  Receive Date: 20241126
  Receipt Date: 20241126
  Transmission Date: 20250115
  Serious: Yes (Death, Other)
  Sender: ALEMBIC
  Company Number: US-ALEMBIC PHARMACUETICALS LIMITED-2024SCAL001666

PATIENT

DRUGS (3)
  1. GUANFACINE [Suspect]
     Active Substance: GUANFACINE
     Indication: Product used for unknown indication
     Dosage: UNK
     Route: 065
  2. SERTRALINE [Suspect]
     Active Substance: SERTRALINE HYDROCHLORIDE
     Indication: Product used for unknown indication
     Dosage: UNK
     Route: 065
  3. TOPIRAMATE [Suspect]
     Active Substance: TOPIRAMATE
     Indication: Product used for unknown indication
     Dosage: UNK
     Route: 065

REACTIONS (11)
  - Arrhythmia [Fatal]
  - Cardiac arrest [Fatal]
  - Coma [Fatal]
  - Depressed level of consciousness [Fatal]
  - Respiratory depression [Fatal]
  - Hypertension [Fatal]
  - Metabolic acidosis [Fatal]
  - Bradycardia [Fatal]
  - Sedation [Fatal]
  - Toxicity to various agents [Fatal]
  - Brain death [Fatal]
